FAERS Safety Report 5380099-9 (Version None)
Quarter: 2007Q3

REPORT INFORMATION
  Report Type: 
  Country: None (occurrence: None)
  Receive Date: 20070706
  Receipt Date: 20070515
  Transmission Date: 20080115
  Serious: Yes (Other)
  Sender: FDA-Public Use
  Company Number: A0648407A

PATIENT
  Age: 63 Year
  Sex: Female
  Weight: 77.5 kg

DRUGS (2)
  1. TYKERB [Suspect]
     Indication: DRUG USE FOR UNKNOWN INDICATION
     Dosage: 5TAB PER DAY
     Route: 048
     Dates: start: 20070401
  2. XELODA [Suspect]
     Indication: DRUG USE FOR UNKNOWN INDICATION
     Dosage: 3150MG PER DAY
     Route: 048
     Dates: start: 20070401

REACTIONS (5)
  - ANOREXIA [None]
  - DIARRHOEA [None]
  - DRUG ADMINISTRATION ERROR [None]
  - NAUSEA [None]
  - VOMITING [None]
